FAERS Safety Report 8317676-9 (Version None)
Quarter: 2012Q2

REPORT INFORMATION
  Report Type: 
  Country: None (occurrence: None)
  Receive Date: 20120427
  Receipt Date: 20110606
  Transmission Date: 20120825
  Serious: No
  Sender: FDA-Public Use
  Company Number: US-GLAXOSMITHKLINE-A0930381A

PATIENT
  Age: 60 Year
  Sex: Female

DRUGS (6)
  1. AMERGE [Suspect]
     Indication: MIGRAINE
     Dosage: 2.5MG PER DAY
     Route: 048
  2. VITAMIN TAB [Concomitant]
  3. PRIMROSE [Concomitant]
  4. FLONASE [Suspect]
     Indication: RHINITIS ALLERGIC
     Route: 045
  5. UNKNOWN MEDICATION [Concomitant]
  6. RESTASIS [Concomitant]

REACTIONS (1)
  - ALOPECIA [None]
